FAERS Safety Report 13863416 (Version 2)
Quarter: 2017Q3

REPORT INFORMATION
  Report Type: Spontaneous
  Country: US (occurrence: US)
  Receive Date: 20170814
  Receipt Date: 20170926
  Transmission Date: 20171127
  Serious: No
  Sender: FDA-Public Use
  Company Number: US-PFIZER INC-2017349094

PATIENT
  Age: 52 Year
  Sex: Female
  Weight: 101.15 kg

DRUGS (9)
  1. REXULTI [Concomitant]
     Active Substance: BREXPIPRAZOLE
     Indication: DEPRESSION
     Dosage: 1 MG, UNK
     Dates: start: 201707
  2. LEVALBUTEROL. [Concomitant]
     Active Substance: LEVALBUTEROL
     Indication: ASTHMA
     Dosage: 2-4 PUFFS AS NEEDED, USUSALLY TAKES JUST 2 PUFFS AT A TIME
  3. ADVIL [Suspect]
     Active Substance: IBUPROFEN
     Indication: PERIPHERAL SWELLING
     Dosage: TWO TABLETS, ONCE
     Route: 048
     Dates: start: 20170809
  4. SERTRALINE [Concomitant]
     Active Substance: SERTRALINE HYDROCHLORIDE
     Indication: OBSESSIVE-COMPULSIVE DISORDER
     Dosage: 100 MG, 1X/DAY
  5. SERTRALINE [Concomitant]
     Active Substance: SERTRALINE HYDROCHLORIDE
     Indication: DEPRESSION
  6. VITAMIN D [Concomitant]
     Active Substance: CHOLECALCIFEROL
     Indication: VITAMIN D DECREASED
     Dosage: 2 TABLETS
  7. SYMBICORT [Concomitant]
     Active Substance: BUDESONIDE\FORMOTEROL FUMARATE DIHYDRATE
     Indication: ASTHMA
     Dosage: 2 PUFFS EVERDAY
  8. ATORVASTATIN [Concomitant]
     Active Substance: ATORVASTATIN
     Indication: BLOOD CHOLESTEROL INCREASED
     Dosage: 20MG A DAY
  9. CLONAZEPAM. [Concomitant]
     Active Substance: CLONAZEPAM
     Indication: ANXIETY
     Dosage: 1MG, A HALF A TABLET AS NEEDED

REACTIONS (7)
  - Intentional product misuse [Unknown]
  - Throat irritation [Unknown]
  - Contraindicated product administered [Unknown]
  - Dysgeusia [Unknown]
  - Product taste abnormal [Unknown]
  - Dyspepsia [Recovering/Resolving]
  - Musculoskeletal stiffness [Not Recovered/Not Resolved]

NARRATIVE: CASE EVENT DATE: 20170809
